FAERS Safety Report 7166703-3 (Version None)
Quarter: 2010Q4

REPORT INFORMATION
  Report Type: 
  Country: None (occurrence: None)
  Receive Date: 20101216
  Receipt Date: 20101208
  Transmission Date: 20110411
  Serious: Yes (Hospitalization)
  Sender: FDA-Public Use
  Company Number: CA-ROCHE-711017

PATIENT
  Sex: Female
  Weight: 41.3 kg

DRUGS (25)
  1. TRASTUZUMAB [Suspect]
     Dosage: LOADING DOSE, FORM: INFUSION
     Route: 042
     Dates: start: 20100609
  2. TRASTUZUMAB [Suspect]
     Dosage: LAST DOSE:22 JULY 2010. DOSAGE FORM:INFUSION
     Route: 042
  3. TRASTUZUMAB [Suspect]
     Dosage: LAST DOSE PRIOR TO SAE: 30 OCTOBER 2010, CYCLE 7 TREATMENT DELAYED.
     Route: 042
  4. PERTUZUMAB [Suspect]
     Dosage: LOADING DOSE.
     Route: 042
     Dates: start: 20100609
  5. PERTUZUMAB [Suspect]
     Dosage: LAST DOSE:30 SEPTEMBER 2010. DOSAGE FORM:INFUSION. CYCLE 7 TREATMENT DELAYED.
     Route: 042
  6. EPIRUBICIN [Suspect]
     Route: 042
     Dates: start: 20100609
  7. EPIRUBICIN [Suspect]
     Dosage: DOSE REDUCED. CYCLE 7 TREATMENT DELAYED.
     Route: 042
     Dates: start: 20100630
  8. FLUOROURACIL [Suspect]
     Dosage: LAST DOSE:22 JULY 2010
     Route: 042
     Dates: start: 20100609
  9. FLUOROURACIL [Suspect]
     Dosage: DOSE REDUCTION AT CYCLE 2
     Route: 042
     Dates: start: 20100630
  10. FLUOROURACIL [Suspect]
     Dosage: CYCLE 3. CYCLE 7 TREATMENT DELAYED.
     Route: 042
     Dates: start: 20100722
  11. CYCLOPHOSPHAMIDE [Suspect]
     Dosage: FORM:INFUSION
     Route: 042
     Dates: start: 20100609
  12. CYCLOPHOSPHAMIDE [Suspect]
     Dosage: DOSE REDUCTION AT CYCLE 2
     Route: 042
     Dates: start: 20100630
  13. CYCLOPHOSPHAMIDE [Suspect]
     Dosage: CYCLE 7 TREATMENT DELAYED.
     Route: 042
     Dates: start: 20100722
  14. DOCETAXEL [Suspect]
     Dosage: LAST DOSE:30 SEPTEMBER 2010. DOSAGE FORM:INFUSION. CYCLE 7 TREATMENT DELAYED.
     Route: 042
     Dates: start: 20100819
  15. OMEGA [Concomitant]
     Dosage: DRUG: OMEGA 3
     Route: 048
     Dates: start: 20070101, end: 20100609
  16. VITAMIN B COMPLEX CAP [Concomitant]
     Route: 048
     Dates: start: 20070101, end: 20100609
  17. REACTINE [Concomitant]
     Dates: start: 19950101
  18. ADVIL [Concomitant]
     Dosage: DRUG: ADVIL SINUS
     Dates: start: 19950101
  19. NASONEX [Concomitant]
     Dosage: TOTAL DAILY DOSE: 1 PUFF PRN
     Dates: start: 19950101
  20. ONDANSETRON [Concomitant]
     Dates: start: 20100609, end: 20100722
  21. DEXAMETHASONE [Concomitant]
     Dosage: DAY 1 EACH CYCLE
     Dates: start: 20100608
  22. DEXAMETHASONE [Concomitant]
     Dates: start: 20100609, end: 20100609
  23. MAXERAN [Concomitant]
     Dates: start: 20100609, end: 20100609
  24. MULTI-VITAMIN [Concomitant]
     Dates: start: 20000101
  25. TYLENOL W/ CODEINE NO. 3 [Concomitant]
     Dosage: TDD: PRN
     Dates: start: 20101101

REACTIONS (3)
  - CLOSTRIDIUM DIFFICILE COLITIS [None]
  - COLITIS [None]
  - URINARY TRACT INFECTION [None]
